FAERS Safety Report 16221693 (Version 1)
Quarter: 2019Q2

REPORT INFORMATION
  Report Type: Spontaneous
  Country: JP (occurrence: JP)
  Receive Date: 20190422
  Receipt Date: 20190422
  Transmission Date: 20190711
  Serious: Yes (Other)
  Sender: FDA-Public Use
  Company Number: JP-SUN PHARMACEUTICAL INDUSTRIES LTD-2019RR-205859

PATIENT
  Age: 56 Year
  Sex: Female

DRUGS (2)
  1. CARBOPLATIN. [Suspect]
     Active Substance: CARBOPLATIN
     Indication: OVARIAN CANCER
     Dosage: SIX CYCLES
     Route: 065
  2. PACLITAXEL. [Suspect]
     Active Substance: PACLITAXEL
     Indication: OVARIAN CANCER
     Dosage: SIX CYCLES
     Route: 065

REACTIONS (1)
  - Leiomyoma [Unknown]
